FAERS Safety Report 7110095-2 (Version None)
Quarter: 2010Q4

REPORT INFORMATION
  Report Type: 
  Country: None (occurrence: None)
  Receive Date: 20101112
  Receipt Date: 20101027
  Transmission Date: 20110411
  Serious: Yes (Hospitalization, Disabling)
  Sender: FDA-Public Use
  Company Number: 1-18123090

PATIENT
  Age: 49 Year
  Sex: Female
  Weight: 58.9676 kg

DRUGS (5)
  1. QUININE SULFATE [Suspect]
     Indication: MUSCLE SPASMS
     Dosage: AS NEEDED, ORAL
     Route: 048
     Dates: start: 20000710
  2. ESTRADIOL [Concomitant]
  3. ZESTRIL [Concomitant]
  4. AMARYL [Concomitant]
  5. MULTIVITAMIN AND VITAMIN C [Concomitant]

REACTIONS (8)
  - ADVERSE EVENT [None]
  - COAGULOPATHY [None]
  - DRUG HYPERSENSITIVITY [None]
  - HAEMORRHAGE [None]
  - LEUKAEMIA [None]
  - PAIN [None]
  - THROMBOCYTOPENIA [None]
  - THYROID DISORDER [None]
